FAERS Safety Report 9389803 (Version 3)
Quarter: 2015Q1

REPORT INFORMATION
  Report Type: Spontaneous
  Country: US (occurrence: US)
  Receive Date: 20130708
  Receipt Date: 20150311
  Transmission Date: 20150721
  Serious: No
  Sender: FDA-Public Use
  Company Number: US-AMGEN-USASP2013041786

PATIENT
  Age: 46 Year
  Sex: Female

DRUGS (2)
  1. METHOTREXATE [Concomitant]
     Active Substance: METHOTREXATE
     Dosage: 2.5 UNK, QWK (2.5 X 7  ONCE A WEEK)
  2. ENBREL [Suspect]
     Active Substance: ETANERCEPT
     Indication: RHEUMATOID ARTHRITIS
     Dosage: 50 MG, QWK
     Route: 065
     Dates: start: 20090509

REACTIONS (5)
  - Therapeutic response decreased [Not Recovered/Not Resolved]
  - Pain [Not Recovered/Not Resolved]
  - Knee operation [Recovered/Resolved]
  - Injection site scar [Recovered/Resolved]
  - Musculoskeletal stiffness [Not Recovered/Not Resolved]

NARRATIVE: CASE EVENT DATE: 20120627
